FAERS Safety Report 7245053-0 (Version None)
Quarter: 2011Q1

REPORT INFORMATION
  Report Type: 
  Country: None (occurrence: None)
  Receive Date: 20110126
  Receipt Date: 20110120
  Transmission Date: 20110831
  Serious: Yes (Hospitalization, Other)
  Sender: FDA-Public Use
  Company Number: JP-ABBOTT-10P-087-0690604-00

PATIENT
  Sex: Male
  Weight: 51 kg

DRUGS (7)
  1. SALAZOSULFAPYRIDINE [Concomitant]
     Indication: RHEUMATOID ARTHRITIS
  2. LANSOPRAZOLE [Concomitant]
     Indication: GASTRITIS PROPHYLAXIS
     Dosage: 30 MG DAILY
  3. HUMIRA [Suspect]
     Indication: RHEUMATOID ARTHRITIS
     Route: 058
     Dates: start: 20100219, end: 20100915
  4. PREDNISOLONE [Concomitant]
     Dosage: 7.5 MG DAILY
     Route: 048
     Dates: start: 20100722
  5. PREDNISOLONE [Concomitant]
     Indication: RHEUMATOID ARTHRITIS
     Dosage: 10 MG DAILY
     Route: 048
     Dates: end: 20100721
  6. DICLOFENAC SODIUM [Concomitant]
     Indication: RHEUMATOID ARTHRITIS
     Dosage: 75 MG DAILY
  7. POLAPREZINC [Concomitant]
     Indication: GASTRITIS PROPHYLAXIS
     Dosage: 150 MG DAILY

REACTIONS (2)
  - WOUND [None]
  - SEPTIC ARTHRITIS STAPHYLOCOCCAL [None]
